FAERS Safety Report 4324734-2 (Version None)
Quarter: 2004Q1

REPORT INFORMATION
  Report Type: 
  Country: None (occurrence: None)
  Receive Date: 20040326
  Receipt Date: 20030130
  Transmission Date: 20041129
  Serious: Yes (Hospitalization, Disabling)
  Sender: FDA-Public Use
  Company Number: WAES 0301USA03189

PATIENT
  Age: 70 Year
  Sex: Male
  Weight: 84 kg

DRUGS (6)
  1. FOSAMAX [Concomitant]
     Route: 048
  2. HYDROCHLOROTHIAZIDE [Concomitant]
  3. VIOXX [Suspect]
     Indication: OSTEOARTHRITIS
     Route: 048
     Dates: start: 19990101, end: 20010101
  4. VIOXX [Suspect]
     Route: 048
     Dates: start: 20010101, end: 20010325
  5. VIOXX [Suspect]
     Indication: ARTHRITIS
     Route: 048
     Dates: start: 19990101, end: 20010101
  6. VIOXX [Suspect]
     Route: 048
     Dates: start: 20010101, end: 20010325

REACTIONS (23)
  - ATRIAL FIBRILLATION [None]
  - BASAL CELL CARCINOMA [None]
  - BLOOD PRESSURE INCREASED [None]
  - CARDIAC MURMUR [None]
  - CAROTID ARTERY STENOSIS [None]
  - CEREBROVASCULAR ACCIDENT [None]
  - CONDUCTION DISORDER [None]
  - CORONARY ARTERY DISEASE [None]
  - CORONARY ARTERY STENOSIS [None]
  - COUGH [None]
  - DEPRESSION [None]
  - DILATATION ATRIAL [None]
  - DIZZINESS [None]
  - GALLOP RHYTHM PRESENT [None]
  - INJURY [None]
  - SEXUAL DYSFUNCTION [None]
  - SLEEP APNOEA SYNDROME [None]
  - SOMNOLENCE [None]
  - SUPRAVENTRICULAR EXTRASYSTOLES [None]
  - TRANSIENT ISCHAEMIC ATTACK [None]
  - VENTRICULAR HYPOKINESIA [None]
  - WEIGHT INCREASED [None]
  - WHITE BLOOD CELL COUNT INCREASED [None]
